FAERS Safety Report 7539062-1 (Version None)
Quarter: 2011Q2

REPORT INFORMATION
  Report Type: 
  Country: None (occurrence: None)
  Receive Date: 20110610
  Receipt Date: 20010108
  Transmission Date: 20111010
  Serious: Yes (Death, Other)
  Sender: FDA-Public Use
  Company Number: PHFR2000GB02232

PATIENT
  Sex: Female

DRUGS (4)
  1. TEMAZEPAM [Concomitant]
     Dosage: 20 MG, DAILY
     Route: 048
  2. CLOZARIL [Suspect]
     Indication: SCHIZOPHRENIA
     Dosage: 150 MG, DAILY
     Route: 048
     Dates: start: 19950309
  3. IMIPRAMINE [Concomitant]
     Dosage: 25 MG, DAILY
     Route: 048
  4. HALOPERIDOL [Concomitant]
     Dosage: 5 MG, BID
     Route: 048

REACTIONS (1)
  - DEATH [None]
